FAERS Safety Report 10032406 (Version 1)
Quarter: 2014Q1

REPORT INFORMATION
  Report Type: Spontaneous
  Country: GB (occurrence: None)
  Receive Date: 20140320
  Receipt Date: 20140320
  Transmission Date: 20141002
  Serious: Yes (Death, Other)
  Sender: FDA-Public Use
  Company Number: AUR-APL-2014-02873

PATIENT
  Age: 67 Year
  Sex: 0

DRUGS (1)
  1. AMOXICILLIN+CLAVULANIC ACID (CLAVULANIC ACID, AMOXICILLIN) [Suspect]
     Indication: PRODUCT USED FOR UNKNOWN INDICATION

REACTIONS (4)
  - Cardiac arrest [None]
  - Procedural complication [None]
  - Anaphylactic reaction [None]
  - Circulatory collapse [None]
